FAERS Safety Report 6087359-7 (Version None)
Quarter: 2009Q1

REPORT INFORMATION
  Report Type: 
  Country: None (occurrence: None)
  Receive Date: 20090223
  Receipt Date: 20090212
  Transmission Date: 20090719
  Serious: Yes (Death)
  Sender: FDA-Public Use
  Company Number: B0558968A

PATIENT
  Age: 75 Year
  Sex: Male

DRUGS (20)
  1. FORTUM [Suspect]
     Indication: LUNG INFECTION
     Dosage: 1G THREE TIMES PER DAY
     Route: 042
     Dates: start: 20081228, end: 20090107
  2. TAZOCILLINE [Suspect]
     Indication: LUNG INFECTION
     Dosage: 4G THREE TIMES PER DAY
     Route: 042
     Dates: start: 20090108, end: 20090116
  3. FLAGYL [Suspect]
     Dosage: 500MG THREE TIMES PER DAY
     Route: 042
     Dates: end: 20090111
  4. CANCIDAS [Suspect]
     Dosage: 50MG PER DAY
     Route: 042
     Dates: start: 20090108, end: 20090119
  5. NEUPOGEN [Suspect]
     Route: 042
     Dates: start: 20081228
  6. NEXIUM [Suspect]
     Dosage: 40MG PER DAY
     Route: 042
  7. PERFALGAN [Suspect]
     Indication: PAIN
     Route: 042
  8. CALCIUM GLUCONATE [Suspect]
     Route: 042
  9. OFLOCET [Suspect]
     Indication: LUNG INFECTION
     Dosage: 200MG TWICE PER DAY
     Route: 042
     Dates: start: 20081228, end: 20090108
  10. AMBISOME [Suspect]
     Route: 042
     Dates: start: 20081230, end: 20090107
  11. MUCOMYST [Concomitant]
  12. VITAMIN K TAB [Concomitant]
     Dates: start: 20090108
  13. LEDERFOLINE [Concomitant]
     Dates: start: 20090108
  14. BLOOD CELLS [Concomitant]
     Dosage: 1UNIT SINGLE DOSE
     Dates: start: 20090108
  15. PLATELETS CONCENTRATE [Concomitant]
     Dosage: 1UNIT SINGLE DOSE
     Route: 042
     Dates: start: 20090108
  16. VANCOMYCINE [Concomitant]
     Indication: LUNG INFECTION
  17. CYCLOSPORINE [Concomitant]
     Dates: start: 20090110
  18. ANTI LYMPHOCYTIC SERUM [Concomitant]
     Dates: start: 20090110
  19. ROVAMYCIN [Concomitant]
  20. ZOVIRAX [Concomitant]

REACTIONS (1)
  - CHOLESTASIS [None]
